FAERS Safety Report 23877176 (Version 1)
Quarter: 2024Q2

REPORT INFORMATION
  Report Type: Spontaneous
  Country: IN (occurrence: IN)
  Receive Date: 20240521
  Receipt Date: 20240521
  Transmission Date: 20240716
  Serious: Yes (Life-Threatening, Hospitalization, Other)
  Sender: FDA-Public Use
  Company Number: IN-862174955-ML2024-02969

PATIENT
  Age: 5 Month
  Sex: Female
  Weight: 4.5 kg

DRUGS (2)
  1. ACETAZOLAMIDE [Suspect]
     Active Substance: ACETAZOLAMIDE
     Indication: Hydrocephalus
     Dosage: ONE-FOURTH TABLET 6 HOURLY
  2. SODIUM CHLORIDE [Suspect]
     Active Substance: SODIUM CHLORIDE
     Indication: Product used for unknown indication
     Dosage: INFUSED FOR THE INTRAOPERATIVE FLUID REQUIREMENTS AND LOSSES WITH THE AIM TO MINIMIZE CEREBRAL EDEMA

REACTIONS (3)
  - Acidosis hyperchloraemic [Recovered/Resolved]
  - Respiratory acidosis [Recovered/Resolved]
  - Metabolic acidosis [Recovered/Resolved]
